FAERS Safety Report 23165524 (Version 1)
Quarter: 2023Q4

REPORT INFORMATION
  Report Type: Spontaneous
  Country: FR (occurrence: FR)
  Receive Date: 20231109
  Receipt Date: 20231109
  Transmission Date: 20240110
  Serious: Yes (Hospitalization, Disabling, Other)
  Sender: FDA-Public Use
  Company Number: FR-OTSUKA-2023_028604

PATIENT
  Age: 34 Year
  Sex: Female

DRUGS (2)
  1. ABILIFY [Suspect]
     Active Substance: ARIPIPRAZOLE
     Indication: Facial pain
     Dosage: 10 MG
     Route: 048
     Dates: start: 2019
  2. IMIJECT [SUMATRIPTAN] [Concomitant]
     Indication: Facial pain
     Dosage: UNK
     Route: 065
     Dates: start: 2019

REACTIONS (4)
  - Arm amputation [Recovered/Resolved with Sequelae]
  - Embolism arterial [Unknown]
  - Pulmonary embolism [Recovered/Resolved with Sequelae]
  - Product use in unapproved indication [Unknown]

NARRATIVE: CASE EVENT DATE: 20190101
